FAERS Safety Report 15844378 (Version 1)
Quarter: 2019Q1

REPORT INFORMATION
  Report Type: Spontaneous
  Country: PL (occurrence: PL)
  Receive Date: 20190118
  Receipt Date: 20190118
  Transmission Date: 20190417
  Serious: Yes (Hospitalization, Other)
  Sender: FDA-Public Use
  Company Number: PL-MYLANLABS-2019M1003875

PATIENT
  Age: 62 Year

DRUGS (20)
  1. GABAPENTIN. [Concomitant]
     Active Substance: GABAPENTIN
     Indication: POLYNEUROPATHY
     Dosage: THREE TIMES A DAY
     Route: 065
  2. METOPROLOL. [Concomitant]
     Active Substance: METOPROLOL
     Indication: PRODUCT USED FOR UNKNOWN INDICATION
     Route: 065
  3. CALCIUM FOLINATE [Suspect]
     Active Substance: LEUCOVORIN CALCIUM
     Indication: PANCREATIC CARCINOMA
     Route: 065
  4. OXYCODONE [Suspect]
     Active Substance: OXYCODONE
     Indication: CANCER PAIN
     Dosage: AND INCREASED
     Route: 065
  5. KETOPROFEN. [Concomitant]
     Active Substance: KETOPROFEN
     Indication: PRODUCT USED FOR UNKNOWN INDICATION
     Route: 065
  6. LACTULOSE. [Concomitant]
     Active Substance: LACTULOSE
     Indication: PROPHYLAXIS
     Dosage: 3 X 20ML
     Route: 065
  7. FLUOROURACIL. [Suspect]
     Active Substance: FLUOROURACIL
     Indication: PANCREATIC CARCINOMA
     Route: 065
  8. OXALIPLATIN. [Suspect]
     Active Substance: OXALIPLATIN
     Indication: PANCREATIC CARCINOMA
     Route: 065
  9. MORPHINE [Suspect]
     Active Substance: MORPHINE
     Indication: CANCER PAIN
     Dosage: AS NEEDED; FORMULATION: IMMEDIATE RELEASE
     Route: 048
  10. SPIRONOLACTONE. [Concomitant]
     Active Substance: SPIRONOLACTONE
     Indication: PRODUCT USED FOR UNKNOWN INDICATION
     Dosage: EVERY OTHER DAY
     Route: 065
  11. KETOPROFEN. [Concomitant]
     Active Substance: KETOPROFEN
     Indication: PRODUCT USED FOR UNKNOWN INDICATION
     Dosage: PRN
     Route: 065
  12. FENTANYL. [Suspect]
     Active Substance: FENTANYL
     Indication: CANCER PAIN
     Dosage: EVERY 3 DAYS AND THEN REDUCED
     Route: 062
  13. FUROSEMIDE. [Concomitant]
     Active Substance: FUROSEMIDE
     Indication: PRODUCT USED FOR UNKNOWN INDICATION
     Route: 065
  14. FENTANYL. [Suspect]
     Active Substance: FENTANYL
     Dosage: AFTER ANOTHER 3 DAYS AGAIN REDUCED
     Route: 062
  15. FENTANYL. [Suspect]
     Active Substance: FENTANYL
     Dosage: 50 MICROGRAM, QH
     Route: 062
  16. PANCREATIN [Concomitant]
     Active Substance: PANCRELIPASE
     Indication: PRODUCT USED FOR UNKNOWN INDICATION
     Dosage: 25000 UNITS ONCE A DAY WITH A MAIN MEAL
     Route: 065
  17. ALPRAZOLAM. [Concomitant]
     Active Substance: ALPRAZOLAM
     Indication: PRODUCT USED FOR UNKNOWN INDICATION
     Route: 065
  18. OXYCODONE [Suspect]
     Active Substance: OXYCODONE
     Dosage: THE DOSE OF OXYCODONE WAS INCREASED TO 200 MG/DAY WITH ROTATING WITHIN 3 DAYS BY 1/3 OF THE DAILY...
     Route: 065
  19. IRINOTECAN [Suspect]
     Active Substance: IRINOTECAN
     Indication: PANCREATIC CARCINOMA
     Route: 065
  20. GABAPENTIN. [Concomitant]
     Active Substance: GABAPENTIN
     Indication: CANCER PAIN
     Dosage: THREE TIMES A DAY AND GRADUALLY INCREASED
     Route: 065

REACTIONS (5)
  - Neutropenia [Unknown]
  - Constipation [Unknown]
  - Nausea [Recovered/Resolved]
  - Polyneuropathy [Recovering/Resolving]
  - Vomiting [Recovered/Resolved]
